FAERS Safety Report 5043014-3 (Version None)
Quarter: 2006Q3

REPORT INFORMATION
  Report Type: 
  Country: None (occurrence: None)
  Receive Date: 20060705
  Receipt Date: 20060626
  Transmission Date: 20061208
  Serious: Yes (Other)
  Sender: FDA-Public Use
  Company Number: PHNR2006AU00847

PATIENT
  Sex: Female

DRUGS (2)
  1. EPILIM [Suspect]
     Indication: NEUROSIS
     Route: 048
  2. CLOZARIL [Suspect]
     Indication: NEUROSIS
     Route: 048

REACTIONS (3)
  - HEPATOMEGALY [None]
  - PLATELET COUNT DECREASED [None]
  - WHITE BLOOD CELL COUNT ABNORMAL [None]
